FAERS Safety Report 10220968 (Version 1)
Quarter: 2014Q2

REPORT INFORMATION
  Report Type: Spontaneous
  Country: US (occurrence: None)
  Receive Date: 20140605
  Receipt Date: 20140605
  Transmission Date: 20141212
  Serious: Yes (Life-Threatening, Hospitalization, Disabling)
  Sender: FDA-Public Use
  Company Number: None

PATIENT
  Age: 29 Year
  Sex: Female
  Weight: 120.2 kg

DRUGS (2)
  1. QUASENSE [Suspect]
     Indication: ORAL CONTRACEPTION
     Dosage: 1 TABLET DAILY,  ONCE DAILY, TAKEN B MOUTH
     Route: 048
     Dates: start: 20120301, end: 20140530
  2. QUASENSE [Suspect]
     Indication: MENORRHAGIA
     Dosage: 1 TABLET DAILY,  ONCE DAILY, TAKEN B MOUTH
     Route: 048
     Dates: start: 20120301, end: 20140530

REACTIONS (3)
  - Pulmonary embolism [None]
  - Splenomegaly [None]
  - Hepatic cancer [None]
